FAERS Safety Report 4788870-9 (Version None)
Quarter: 2005Q4

REPORT INFORMATION
  Report Type: 
  Country: None (occurrence: None)
  Receive Date: 20051004
  Receipt Date: 20050921
  Transmission Date: 20060501
  Serious: Yes (Hospitalization)
  Sender: FDA-Public Use
  Company Number: 2005132640

PATIENT
  Age: 55 Year
  Sex: Male

DRUGS (2)
  1. CLINDAMYCIN HCL [Suspect]
     Indication: OEDEMA
     Dosage: 1800 MG (300 MG, SIX TIMES DAILY; INTERVAL: EVERY DAY), ORAL
     Route: 048
     Dates: start: 20050510, end: 20050524
  2. CIPROFLOXACIN [Suspect]
     Indication: OEDEMA
     Dosage: 1000 MG (500 MG, BID INTERVAL:  EVERY DAY), ORAL
     Route: 048
     Dates: start: 20050510, end: 20050524

REACTIONS (1)
  - VASCULITIS [None]
